FAERS Safety Report 4309197-5 (Version None)
Quarter: 2004Q1

REPORT INFORMATION
  Report Type: 
  Country: None (occurrence: None)
  Receive Date: 20040227
  Receipt Date: 20040220
  Transmission Date: 20041129
  Serious: Yes (Hospitalization)
  Sender: FDA-Public Use
  Company Number: JP-JNJFOC-20040204717

PATIENT
  Age: 40 Year
  Sex: Male

DRUGS (2)
  1. LEUSTATIN [Suspect]
     Dosage: 8 MG, IN 1 DAY, INTRAVENOUS DRIP
     Route: 041
  2. RITUXIMAB (RITUXIMAB) [Concomitant]

REACTIONS (6)
  - BONE MARROW DEPRESSION [None]
  - ENTERITIS [None]
  - MYELODYSPLASTIC SYNDROME [None]
  - SCROTAL ULCER [None]
  - STAPHYLOCOCCAL INFECTION [None]
  - STOMATITIS [None]
